FAERS Safety Report 8459097-4 (Version None)
Quarter: 2012Q2

REPORT INFORMATION
  Report Type: 
  Country: None (occurrence: None)
  Receive Date: 20120622
  Receipt Date: 20120612
  Transmission Date: 20120825
  Serious: Yes (Hospitalization)
  Sender: FDA-Public Use
  Company Number: US-PFIZER INC-2012147487

PATIENT
  Sex: Male

DRUGS (16)
  1. BLINDED THERAPY [Suspect]
     Dosage: UNK
     Dates: start: 20111205
  2. HYDROCHLOROTHIAZIDE AND SPIRONOLACTONE [Suspect]
     Dosage: UNK
  3. INSULIN ASPART [Suspect]
     Dosage: 150 IU, UNK
     Dates: start: 20110603
  4. ISOSORBIDE MONONITRATE [Suspect]
     Dosage: UNK
  5. INSULIN GLARGINE [Suspect]
     Indication: TYPE 2 DIABETES MELLITUS
     Dosage: 128 IU, UNK
     Dates: start: 20110811
  6. INSULIN GLARGINE [Suspect]
     Dosage: 140 IU, UNK
     Dates: start: 20111121
  7. INSULIN GLARGINE [Suspect]
     Dosage: 128 IU, UNK
     Dates: start: 20120516
  8. NIFEDIPINE [Suspect]
     Dosage: UNK
  9. BLINDED THERAPY [Suspect]
     Indication: TYPE 2 DIABETES MELLITUS
     Dosage: UNK
     Dates: start: 20101220, end: 20111114
  10. NIACIN [Concomitant]
     Dosage: UNK
  11. INSULIN ASPART [Suspect]
     Dosage: 126 IU, UNK
     Dates: start: 20110311
  12. LISINOPRIL [Suspect]
     Dosage: UNK
  13. ASPIRIN [Suspect]
     Dosage: UNK
  14. INSULIN ASPART [Suspect]
     Indication: TYPE 2 DIABETES MELLITUS
     Dosage: 120 IU, UNK
  15. ATENOLOL [Suspect]
     Dosage: UNK
  16. FUROSEMIDE [Suspect]
     Dosage: UNK

REACTIONS (2)
  - RENAL FAILURE ACUTE [None]
  - HYPOTENSION [None]
